FAERS Safety Report 5670318-3 (Version None)
Quarter: 2008Q2

REPORT INFORMATION
  Report Type: 
  Country: None (occurrence: None)
  Receive Date: 20080229
  Receipt Date: 20070305
  Transmission Date: 20081010
  Serious: Yes (Other)
  Sender: FDA-Public Use
  Company Number: 237691

PATIENT
  Age: 16 Year
  Sex: Male

DRUGS (5)
  1. NUTROPIN AQ [Suspect]
     Indication: GROWTH HORMONE DEFICIENCY
     Dosage: 1.75 MG, 7/WEEK, SUBCUTANEOUS
     Route: 058
     Dates: start: 20010425
  2. ADDERALL 10 [Concomitant]
  3. ADDERALL XR 10 [Concomitant]
  4. CLONIDINE [Concomitant]
  5. REMERON [Concomitant]

REACTIONS (1)
  - SCOLIOSIS [None]
